FAERS Safety Report 4293724-0 (Version None)
Quarter: 2004Q1

REPORT INFORMATION
  Report Type: 
  Country: None (occurrence: None)
  Receive Date: 20040212
  Receipt Date: 20010221
  Transmission Date: 20041129
  Serious: Yes (Death, Hospitalization)
  Sender: FDA-Public Use
  Company Number: GB-GLAXOSMITHKLINE-B0099526A

PATIENT
  Age: 52 Year
  Sex: Female
  Weight: 58.1 kg

DRUGS (2)
  1. ZYBAN [Suspect]
     Route: 048
     Dates: start: 20000905, end: 20001003
  2. PROZAC [Concomitant]

REACTIONS (10)
  - ASTROCYTOMA [None]
  - BODY TEMPERATURE INCREASED [None]
  - COMA [None]
  - DYSPHAGIA [None]
  - EATING DISORDER [None]
  - INCONTINENCE [None]
  - INFECTION [None]
  - MEMORY IMPAIRMENT [None]
  - SLEEP DISORDER [None]
  - VOMITING [None]
